FAERS Safety Report 8195549-2 (Version None)
Quarter: 2012Q1

REPORT INFORMATION
  Report Type: 
  Country: None (occurrence: None)
  Receive Date: 20120308
  Receipt Date: 20120305
  Transmission Date: 20120608
  Serious: Yes (Death, Hospitalization, Other)
  Sender: FDA-Public Use
  Company Number: PHEH2011US03918

PATIENT
  Sex: Male

DRUGS (1)
  1. EXJADE [Suspect]
     Indication: MYELODYSPLASTIC SYNDROME
     Dosage: 1000 MG, QD
     Route: 048
     Dates: start: 20100112

REACTIONS (7)
  - THROMBOSIS [None]
  - DEHYDRATION [None]
  - DEATH [None]
  - MULTIPLE MYELOMA [None]
  - ABSCESS [None]
  - THROMBOCYTOPENIA [None]
  - HAEMATOMA [None]
